FAERS Safety Report 19819522 (Version 2)
Quarter: 2021Q3

REPORT INFORMATION
  Report Type: Spontaneous
  Country: US (occurrence: US)
  Receive Date: 20210913
  Receipt Date: 20210917
  Transmission Date: 20211014
  Serious: Yes (Life-Threatening, Hospitalization, Other)
  Sender: FDA-Public Use
  Company Number: US-CIPLA LTD.-2021US06119

PATIENT

DRUGS (5)
  1. HYDRALAZINE HCL;ISOSORBIDE DINITRATE [Suspect]
     Active Substance: HYDRALAZINE HYDROCHLORIDE\ISOSORBIDE DINITRATE
     Indication: BLOOD PRESSURE ABNORMAL
     Dosage: DAILY, 1 BOTTLE
     Route: 065
  2. BENAZEPRIL [Suspect]
     Active Substance: BENAZEPRIL HYDROCHLORIDE
     Indication: BLOOD PRESSURE ABNORMAL
     Dosage: 1 BOTTLE
     Route: 065
  3. CARVEDILOL. [Suspect]
     Active Substance: CARVEDILOL
     Indication: BLOOD PRESSURE ABNORMAL
     Dosage: FOUND 3 BOTTLES OF CARVEDILOL AT 2 DIFFERENT, DAILY
     Route: 065
  4. HYDROCHLOROTHIAZIDE. [Suspect]
     Active Substance: HYDROCHLOROTHIAZIDE
     Indication: BLOOD PRESSURE ABNORMAL
     Dosage: 4 DOSES AT DIFFERENT DOSES, DAILY
     Route: 065
  5. AMLODIPINE [Suspect]
     Active Substance: AMLODIPINE BESYLATE
     Indication: BLOOD PRESSURE ABNORMAL
     Dosage: UNK, DAILY, 1 BOTTLE
     Route: 065

REACTIONS (5)
  - Fall [Unknown]
  - Unresponsive to stimuli [Unknown]
  - Hypotension [Unknown]
  - Cerebrovascular accident [Unknown]
  - Mental disorder [Unknown]
